FAERS Safety Report 7230079-3 (Version None)
Quarter: 2011Q1

REPORT INFORMATION
  Report Type: 
  Country: None (occurrence: None)
  Receive Date: 20110118
  Receipt Date: 20110106
  Transmission Date: 20110831
  Serious: No
  Sender: FDA-Public Use
  Company Number: US-BIOGENIDEC-2010BI036592

PATIENT
  Age: 48 Year
  Sex: Female

DRUGS (3)
  1. DEPO-MEDROL [Concomitant]
     Indication: FATIGUE
  2. DEPO-MEDROL [Concomitant]
     Indication: MUSCULOSKELETAL STIFFNESS
  3. TYSABRI [Suspect]
     Indication: MULTIPLE SCLEROSIS
     Route: 042
     Dates: start: 20101007

REACTIONS (4)
  - JOINT STIFFNESS [None]
  - ARTHRITIS [None]
  - ARTHROPATHY [None]
  - FALL [None]
